FAERS Safety Report 6597671-0 (Version None)
Quarter: 2010Q1

REPORT INFORMATION
  Report Type: 
  Country: None (occurrence: None)
  Receive Date: 20100216
  Receipt Date: 20100202
  Transmission Date: 20100710
  Serious: Yes (Other)
  Sender: FDA-Public Use
  Company Number: 230170J10BRA

PATIENT
  Sex: Female

DRUGS (5)
  1. REBIF [Suspect]
     Indication: RELAPSING-REMITTING MULTIPLE SCLEROSIS
     Dosage: 44 MCG, 3 IN 1 WEEKS
     Dates: start: 20071203
  2. TEGRETOL [Concomitant]
  3. LEXOTAN (BROMAZEPAM) [Concomitant]
  4. SEROQUEL [Concomitant]
  5. VENLIFT (VENLAFAXINE HYDROCHLORIDE) [Concomitant]

REACTIONS (2)
  - SPINAL CORD COMPRESSION [None]
  - SPINAL CORD OEDEMA [None]
